FAERS Safety Report 20639594 (Version 1)
Quarter: 2022Q1

REPORT INFORMATION
  Report Type: Spontaneous
  Country: US (occurrence: US)
  Receive Date: 20220326
  Receipt Date: 20220326
  Transmission Date: 20220424
  Serious: No
  Sender: FDA-Public Use
  Company Number: US-SA-SAC20220318000176

PATIENT
  Sex: Female

DRUGS (6)
  1. DUPIXENT [Suspect]
     Active Substance: DUPILUMAB
     Indication: Asthma
     Dosage: 300 MG, QOW
     Route: 058
  2. ALBUTEROL SULFATE [Concomitant]
     Active Substance: ALBUTEROL SULFATE
  3. FAMOTIDINE [Concomitant]
     Active Substance: FAMOTIDINE
  4. MONTELUKAST SODIUM [Concomitant]
     Active Substance: MONTELUKAST SODIUM
  5. ESTRADIOL [Concomitant]
     Active Substance: ESTRADIOL
  6. OMEPRAZOLE [Concomitant]
     Active Substance: OMEPRAZOLE

REACTIONS (7)
  - Food interaction [Unknown]
  - Peripheral swelling [Unknown]
  - Headache [Unknown]
  - Neck pain [Unknown]
  - Irregular breathing [Unknown]
  - Urine output decreased [Unknown]
  - Nausea [Unknown]
